FAERS Safety Report 16068342 (Version 2)
Quarter: 2019Q2

REPORT INFORMATION
  Report Type: Report from Study
  Country: None (occurrence: US)
  Receive Date: 20190313
  Receipt Date: 20190607
  Transmission Date: 20190711
  Serious: Yes (Hospitalization, Other)
  Sender: FDA-Public Use
  Company Number: US-ABBVIE-19K-163-2699079-00

PATIENT
  Sex: Male
  Weight: 104.42 kg

DRUGS (6)
  1. ZOLOFT [Concomitant]
     Active Substance: SERTRALINE HYDROCHLORIDE
     Indication: DEPRESSION
  2. HUMIRA [Suspect]
     Active Substance: ADALIMUMAB
     Indication: CROHN^S DISEASE
     Route: 058
     Dates: start: 2016
  3. OXYCODONE [Concomitant]
     Active Substance: OXYCODONE
     Indication: PAIN
  4. CARVEDILOL. [Concomitant]
     Active Substance: CARVEDILOL
     Indication: HYPERTENSION
  5. KLONOPIN [Concomitant]
     Active Substance: CLONAZEPAM
     Indication: ANXIETY
  6. HUMIRA [Suspect]
     Active Substance: ADALIMUMAB
     Indication: ANKYLOSING SPONDYLITIS

REACTIONS (20)
  - Colostomy [Recovered/Resolved with Sequelae]
  - Infection [Recovered/Resolved]
  - Malaise [Unknown]
  - Loss of consciousness [Recovered/Resolved]
  - Dysphagia [Recovered/Resolved]
  - Pneumonia [Recovered/Resolved]
  - Joint range of motion decreased [Unknown]
  - Muscle spasms [Recovered/Resolved with Sequelae]
  - White blood cell count increased [Recovered/Resolved]
  - Cerebrovascular accident [Recovered/Resolved]
  - Vomiting [Recovered/Resolved]
  - Arthralgia [Unknown]
  - Fall [Recovered/Resolved]
  - Pain [Unknown]
  - Small intestinal obstruction [Recovered/Resolved]
  - Infection [Recovering/Resolving]
  - Injection site pain [Not Recovered/Not Resolved]
  - Pneumonia [Unknown]
  - Brain oedema [Recovered/Resolved]
  - Mobility decreased [Recovered/Resolved]

NARRATIVE: CASE EVENT DATE: 2018
